FAERS Safety Report 13552711 (Version 1)
Quarter: 2017Q2

REPORT INFORMATION
  Report Type: Report from Study
  Country: US (occurrence: US)
  Receive Date: 20170517
  Receipt Date: 20170517
  Transmission Date: 20170830
  Serious: Yes (Death, Hospitalization, Other)
  Sender: FDA-Public Use
  Company Number: US-ROCHE-1935229

PATIENT
  Age: 22 Year
  Sex: Female

DRUGS (3)
  1. ALTEPLASE [Suspect]
     Active Substance: ALTEPLASE
     Indication: CEREBRAL VENOUS THROMBOSIS
     Route: 013
  2. HEPARIN [Concomitant]
     Active Substance: HEPARIN SODIUM
  3. ARGATROBAN. [Concomitant]
     Active Substance: ARGATROBAN

REACTIONS (4)
  - Haemorrhagic transformation stroke [Unknown]
  - Basal ganglia stroke [Unknown]
  - Infection [Fatal]
  - Therapy partial responder [Unknown]
